FAERS Safety Report 7508837-7 (Version None)
Quarter: 2011Q2

REPORT INFORMATION
  Report Type: 
  Country: None (occurrence: None)
  Receive Date: 20110527
  Receipt Date: 20110520
  Transmission Date: 20111010
  Serious: Yes (Death)
  Sender: FDA-Public Use
  Company Number: PHHY2010TW36467

PATIENT
  Age: 74 Year
  Sex: Female

DRUGS (1)
  1. ZOLEDRONIC ACID [Suspect]
     Indication: OSTEOPOROSIS POSTMENOPAUSAL
     Dosage: 5MG/100 CC ONCE PER YEAR
     Route: 042
     Dates: start: 20100524

REACTIONS (3)
  - BONE PAIN [None]
  - PYREXIA [None]
  - BILE DUCT CANCER [None]
